FAERS Safety Report 10385373 (Version 1)
Quarter: 2014Q3

REPORT INFORMATION
  Report Type: Spontaneous
  Country: US (occurrence: US)
  Receive Date: 20140814
  Receipt Date: 20140814
  Transmission Date: 20150326
  Serious: Yes (Other)
  Sender: FDA-Public Use
  Company Number: US-GLAXOSMITHKLINE-B1023437A

PATIENT
  Age: 8 Month
  Sex: Female

DRUGS (2)
  1. CYCLOPHOSPHAMIDE. [Suspect]
     Active Substance: CYCLOPHOSPHAMIDE
     Indication: OPSOCLONUS MYOCLONUS
     Dosage: 1000MGM2 UNKNOWN
     Route: 042
  2. OFATUMUMAB [Suspect]
     Active Substance: OFATUMUMAB
     Indication: OPSOCLONUS MYOCLONUS
     Dosage: 1000MGM2 WEEKLY
     Route: 065

REACTIONS (4)
  - Toxicity to various agents [Unknown]
  - Infection [Unknown]
  - Haematotoxicity [Unknown]
  - Anaphylactic reaction [Unknown]
